FAERS Safety Report 19128558 (Version 1)
Quarter: 2021Q2

REPORT INFORMATION
  Report Type: Spontaneous
  Country: US (occurrence: US)
  Receive Date: 20210413
  Receipt Date: 20210413
  Transmission Date: 20210717
  Serious: No
  Sender: FDA-Public Use
  Company Number: US-ALLERGAN-2024168US

PATIENT
  Age: 64 Year
  Sex: Female

DRUGS (1)
  1. LATISSE [Suspect]
     Active Substance: BIMATOPROST
     Indication: GROWTH OF EYELASHES
     Dosage: 2 GTT, QHS
     Dates: start: 202002, end: 202004

REACTIONS (4)
  - Eyelid irritation [Recovered/Resolved]
  - Swelling of eyelid [Unknown]
  - Hypersensitivity [Unknown]
  - Lacrimation increased [Unknown]

NARRATIVE: CASE EVENT DATE: 202002
